FAERS Safety Report 9846979 (Version 1)
Quarter: 2013Q4

REPORT INFORMATION
  Report Type: Spontaneous
  Country: US (occurrence: None)
  Receive Date: 20131219
  Receipt Date: 20131219
  Transmission Date: 20140711
  Serious: Yes (Death)
  Sender: FDA-Public Use
  Company Number: 163-21880-13024282

PATIENT
  Age: 65 Year
  Sex: Female

DRUGS (2)
  1. REVLIMID (LENALIDOMIDE) (10 MILLIGRAM) [Suspect]
     Indication: PLASMA CELL MYELOMA
     Dosage: 10 MG , 1 IN 1 D,
     Dates: start: 200811
  2. THALIDOMID [Suspect]
     Indication: PLASMA CELL MYELOMA
     Dosage: 200 MG , 7 IN 7 D, PO
     Route: 048
     Dates: start: 20120206

REACTIONS (1)
  - Plasma cell myeloma [None]
